FAERS Safety Report 11558647 (Version 1)
Quarter: 2015Q3

REPORT INFORMATION
  Report Type: Spontaneous
  Country: US (occurrence: None)
  Receive Date: 20150925
  Receipt Date: 20150925
  Transmission Date: 20151125
  Serious: No
  Sender: FDA-Public Use
  Company Number: None

PATIENT
  Age: 39 Year
  Sex: Female
  Weight: 66.68 kg

DRUGS (1)
  1. LO/OVRAL [Suspect]
     Active Substance: ETHINYL ESTRADIOL\NORGESTREL
     Indication: CONTRACEPTION
     Dosage: DAILY 1 PILL
     Route: 048

REACTIONS (4)
  - Syncope [None]
  - Dizziness [None]
  - Fall [None]
  - Palpitations [None]
